FAERS Safety Report 9828686 (Version 1)
Quarter: 2014Q1

REPORT INFORMATION
  Report Type: Report from Study
  Country: US (occurrence: US)
  Receive Date: 20140117
  Receipt Date: 20140117
  Transmission Date: 20141002
  Serious: No
  Sender: FDA-Public Use
  Company Number: US-GILEAD-2014-0092225

PATIENT
  Age: 56 Year
  Sex: Female

DRUGS (2)
  1. SOFOSBUVIR [Suspect]
     Indication: CHRONIC HEPATITIS C
     Dosage: 400 MG, UNK
     Route: 065
     Dates: start: 20140104
  2. RIBASPHERE [Suspect]
     Indication: CHRONIC HEPATITIS C
     Route: 065

REACTIONS (15)
  - Feeling cold [Unknown]
  - Feeling hot [Unknown]
  - Paraesthesia [Unknown]
  - Chills [Unknown]
  - Decreased appetite [Unknown]
  - Hyperhidrosis [Unknown]
  - Headache [Unknown]
  - Nausea [Unknown]
  - Chest pain [Unknown]
  - Vomiting [Unknown]
  - Asthenia [Unknown]
  - Arthralgia [Unknown]
  - Abdominal pain [Unknown]
  - Fatigue [Unknown]
  - Pyrexia [Unknown]
